FAERS Safety Report 22400185 (Version 1)
Quarter: 2023Q2

REPORT INFORMATION
  Report Type: Spontaneous
  Country: US (occurrence: None)
  Receive Date: 20230601
  Receipt Date: 20230601
  Transmission Date: 20230722
  Serious: Yes (Life-Threatening, Hospitalization, Disabling)
  Sender: FDA-Public Use
  Company Number: None

PATIENT
  Age: 49 Year
  Sex: Female
  Weight: 78.75 kg

DRUGS (1)
  1. INJECTAFER [Suspect]
     Active Substance: FERRIC CARBOXYMALTOSE
     Indication: Iron deficiency anaemia
     Dates: start: 20200626, end: 20230421

REACTIONS (3)
  - Blood phosphorus decreased [None]
  - Bone pain [None]
  - Myalgia [None]

NARRATIVE: CASE EVENT DATE: 20220524
